FAERS Safety Report 18312885 (Version 1)
Quarter: 2020Q3

REPORT INFORMATION
  Report Type: Report from Study
  Country: MY (occurrence: MY)
  Receive Date: 20200925
  Receipt Date: 20200925
  Transmission Date: 20201103
  Serious: Yes (Death, Other)
  Sender: FDA-Public Use
  Company Number: MY-ASTRAZENECA-2020SF22786

PATIENT
  Age: 15064 Day
  Sex: Female

DRUGS (1)
  1. TAGRISSO [Suspect]
     Active Substance: OSIMERTINIB
     Indication: NON-SMALL CELL LUNG CANCER
     Dosage: 80.0MG UNKNOWN
     Route: 048
     Dates: start: 20200630, end: 20200901

REACTIONS (2)
  - Terminal state [Unknown]
  - Death [Fatal]

NARRATIVE: CASE EVENT DATE: 20200921
